FAERS Safety Report 14236589 (Version 2)
Quarter: 2017Q4

REPORT INFORMATION
  Report Type: Spontaneous
  Country: ES (occurrence: ES)
  Receive Date: 20171129
  Receipt Date: 20171208
  Transmission Date: 20180321
  Serious: Yes (Hospitalization)
  Sender: FDA-Public Use
  Company Number: ES-BAUSCH-BL-2017-032597

PATIENT
  Age: 83 Year
  Sex: Male

DRUGS (8)
  1. DESONIA [Concomitant]
     Indication: URINARY INCONTINENCE
  2. DUODART [Concomitant]
     Active Substance: DUTASTERIDE\TAMSULOSIN
     Indication: URINARY INCONTINENCE
  3. OMNIC [Concomitant]
     Active Substance: TAMSULOSIN HYDROCHLORIDE
     Indication: BENIGN PROSTATIC HYPERPLASIA
  4. BENICAR [Concomitant]
     Active Substance: OLMESARTAN MEDOXOMIL
     Indication: HYPERTENSION
     Dosage: IN THE MORNING
     Dates: start: 201706
  5. DUODART [Concomitant]
     Active Substance: DUTASTERIDE\TAMSULOSIN
     Indication: PROSTATIC DISORDER
     Dosage: 0.5/0.4 MG, FOR 2-3 YEARS
  6. DESONIA [Concomitant]
     Indication: PROSTATIC DISORDER
     Dosage: FOR 2-3 YEARS
  7. ZEBINIX [Concomitant]
     Active Substance: ESLICARBAZEPINE ACETATE
     Indication: NERVOUS SYSTEM DISORDER
     Dates: start: 201706
  8. ZYCLARA [Suspect]
     Active Substance: IMIQUIMOD
     Indication: ACTINIC KERATOSIS
     Dosage: ONE APPLICATION EVERY NIGHT FOR 2 WEEKS, FOLLOWED BY 2 WEEKS BREAK AND 2 MORE WEEKS
     Route: 061
     Dates: start: 20170922, end: 20171101

REACTIONS (9)
  - Blood pressure abnormal [Recovered/Resolved]
  - Vertigo [Recovered/Resolved]
  - Erythema [Recovered/Resolved]
  - Dizziness [Recovered/Resolved]
  - Asthenia [Recovered/Resolved]
  - Arthralgia [Recovered/Resolved]
  - Chemical burn [Recovered/Resolved]
  - Scab [Recovered/Resolved]
  - Headache [Recovered/Resolved]

NARRATIVE: CASE EVENT DATE: 2017
